APPROVED DRUG PRODUCT: OXILAN-300
Active Ingredient: IOXILAN
Strength: 62%
Dosage Form/Route: INJECTABLE;INJECTION
Application: N020316 | Product #001
Applicant: GUERBET LLC
Approved: Dec 21, 1995 | RLD: No | RS: No | Type: DISCN